FAERS Safety Report 4822822-5 (Version None)
Quarter: 2005Q4

REPORT INFORMATION
  Report Type: 
  Country: None (occurrence: None)
  Receive Date: 20051107
  Receipt Date: 20051107
  Transmission Date: 20060501
  Serious: Yes (Hospitalization)
  Sender: FDA-Public Use
  Company Number: None

PATIENT
  Sex: Male
  Weight: 60 kg

DRUGS (1)
  1. GAMUNEX [Suspect]
     Dosage: 120 GM X 1 IV
     Route: 042
     Dates: start: 20051019

REACTIONS (4)
  - ABDOMINAL PAIN [None]
  - HAEMOLYTIC ANAEMIA [None]
  - NAUSEA [None]
  - VOMITING [None]
